FAERS Safety Report 9562160 (Version 1)
Quarter: 2013Q3

REPORT INFORMATION
  Report Type: Spontaneous
  Country: BR (occurrence: None)
  Receive Date: 20130925
  Receipt Date: 20130925
  Transmission Date: 20140515
  Serious: Yes (Hospitalization)
  Sender: FDA-Public Use
  Company Number: DSU-2013-04606

PATIENT
  Age: 46 Year
  Sex: Female
  Weight: 68 kg

DRUGS (2)
  1. OLMETEC HCT [Suspect]
     Indication: HYPERTENSION
     Route: 048
     Dates: start: 20110630, end: 201203
  2. CENTRUM (VITAMINS NOS, MINERALS NOS) (TABLET) (VITAMINS NOS, MINERALS NOS) [Concomitant]

REACTIONS (1)
  - Obesity surgery [None]
